FAERS Safety Report 20156103 (Version 1)
Quarter: 2021Q4

REPORT INFORMATION
  Report Type: Spontaneous
  Country: BE (occurrence: BE)
  Receive Date: 20211207
  Receipt Date: 20211207
  Transmission Date: 20220304
  Serious: Yes (Other)
  Sender: FDA-Public Use
  Company Number: BE-AUROBINDO-AUR-APL-2021-042243

PATIENT
  Age: 60 Year
  Weight: 83 kg

DRUGS (7)
  1. VORICONAZOLE [Suspect]
     Active Substance: VORICONAZOLE
     Indication: Aspergillus infection
     Dosage: 960 MILLIGRAM, QD, (480 MILLIGRAM, TWO TIMES A DAY)
     Route: 042
  2. VORICONAZOLE [Suspect]
     Active Substance: VORICONAZOLE
     Dosage: 600 MILLIGRAM, QD, (300 MILLIGRAM, TWO TIMES A DAY)
     Route: 042
  3. ISAVUCONAZOLE [Interacting]
     Active Substance: ISAVUCONAZOLE
     Indication: Product used for unknown indication
     Dosage: 200 MILLIGRAM, QD, (200 MILLIGRAM, ONCE A DAY)
     Route: 042
  4. ISAVUCONAZOLE [Interacting]
     Active Substance: ISAVUCONAZOLE
     Dosage: 600 MILLIGRAM, QD, (200 MILLIGRAM, 3 TIMES A DAY)
     Route: 042
  5. FLUCLOXACILLIN [Interacting]
     Active Substance: FLUCLOXACILLIN
     Indication: Staphylococcal infection
     Dosage: 12 GRAM, QD, (12 GRAM, DAILY)
     Route: 042
  6. CASPOFUNGIN [Concomitant]
     Active Substance: CASPOFUNGIN
     Indication: Product used for unknown indication
     Dosage: 70 MILLIGRAM
     Route: 065
  7. AMPHOTERICIN B [Concomitant]
     Active Substance: AMPHOTERICIN B
     Indication: Product used for unknown indication
     Dosage: UNK
     Route: 065

REACTIONS (2)
  - Drug resistance [Unknown]
  - Drug interaction [Unknown]
